FAERS Safety Report 19443975 (Version 6)
Quarter: 2021Q3

REPORT INFORMATION
  Report Type: Report from Study
  Country: US (occurrence: US)
  Receive Date: 20210621
  Receipt Date: 20210713
  Transmission Date: 20211014
  Serious: Yes (Hospitalization, Other)
  Sender: FDA-Public Use
  Company Number: US-ALKERMES INC.-ALK-2021-003160

PATIENT
  Age: 38 Year
  Sex: Female
  Weight: 97.8 kg

DRUGS (66)
  1. BLINDED PREGABALIN [Suspect]
     Active Substance: PREGABALIN
     Dosage: 75 MILLIGRAM, ONE TIME DOSE
     Route: 048
     Dates: start: 20210606, end: 20210606
  2. BLINDED PREGABALIN [Suspect]
     Active Substance: PREGABALIN
     Dosage: 100 MILLIGRAM, ONE TIME DOSE
     Route: 048
     Dates: start: 20210606, end: 20210606
  3. PLACEBO [Suspect]
     Active Substance: UNSPECIFIED INGREDIENT
     Dosage: 200 MILLIGRAM, ONE TIME DOSE
     Route: 048
     Dates: start: 20210605, end: 20210605
  4. PLACEBO [Suspect]
     Active Substance: UNSPECIFIED INGREDIENT
     Dosage: 100 MILLIGRAM, ONE TIME DOSE
     Route: 048
     Dates: start: 20210605, end: 20210605
  5. PLACEBO [Suspect]
     Active Substance: UNSPECIFIED INGREDIENT
     Dosage: 200 MILLIGRAM, ONE TIME DOSE
     Route: 048
     Dates: start: 20210604, end: 20210604
  6. BLINDED PREGABALIN [Suspect]
     Active Substance: PREGABALIN
     Dosage: 100 MILLIGRAM, ONE TIME DOSE
     Route: 048
     Dates: start: 20210603, end: 20210603
  7. LUCEMYRA [Suspect]
     Active Substance: LOFEXIDINE
     Dosage: 0.36 MILLIGRAM, ONE TIME DOSE
     Route: 048
     Dates: start: 20210605, end: 20210606
  8. LUCEMYRA [Suspect]
     Active Substance: LOFEXIDINE
     Dosage: 0.36 MILLIGRAM, ONE TIME DOSE
     Route: 048
     Dates: start: 20210605, end: 20210605
  9. LUCEMYRA [Suspect]
     Active Substance: LOFEXIDINE
     Dosage: 0.36 MILLIGRAM, ONE TIME DOSE
     Route: 048
     Dates: start: 20210603, end: 20210603
  10. BLINDED PREGABALIN [Suspect]
     Active Substance: PREGABALIN
     Indication: DRUG WITHDRAWAL SYNDROME
     Dosage: 25 MILLIGRAM, ONE TIME DOSE
     Route: 048
     Dates: start: 20210608, end: 20210608
  11. PLACEBO [Suspect]
     Active Substance: UNSPECIFIED INGREDIENT
     Dosage: 100 MILLIGRAM, ONE TIME DOSE
     Route: 048
     Dates: start: 20210607, end: 20210607
  12. PLACEBO [Suspect]
     Active Substance: UNSPECIFIED INGREDIENT
     Dosage: 50 MILLIGRAM, ONE TIME DOSE
     Route: 048
     Dates: start: 20210607, end: 20210607
  13. PLACEBO [Suspect]
     Active Substance: UNSPECIFIED INGREDIENT
     Dosage: 100 MILLIGRAM, ONE TIME DOSE
     Route: 048
     Dates: start: 20210606, end: 20210606
  14. PLACEBO [Suspect]
     Active Substance: UNSPECIFIED INGREDIENT
     Dosage: 200 MILLIGRAM, ONE TIME DOSE
     Route: 048
     Dates: start: 20210603, end: 20210603
  15. BLINDED PREGABALIN [Suspect]
     Active Substance: PREGABALIN
     Dosage: 100 MILLIGRAM, ONE TIME DOSE
     Route: 048
     Dates: start: 20210603, end: 20210603
  16. LUCEMYRA [Suspect]
     Active Substance: LOFEXIDINE
     Indication: DRUG WITHDRAWAL SYNDROME
     Dosage: 0.18 MILLIGRAM, ONE TIME DOSE
     Route: 048
     Dates: start: 20210608, end: 20210608
  17. LUCEMYRA [Suspect]
     Active Substance: LOFEXIDINE
     Dosage: 0.36 MILLIGRAM, ONE TIME DOSE
     Route: 048
     Dates: start: 20210606, end: 20210606
  18. OTHER THERAPEUTIC PRODUCTS [Concomitant]
     Active Substance: UNSPECIFIED INGREDIENT
     Indication: HYPERTENSION
     Dosage: UNK
     Route: 048
  19. PLACEBO [Suspect]
     Active Substance: UNSPECIFIED INGREDIENT
     Indication: DRUG WITHDRAWAL SYNDROME
     Dosage: 25 MILLIGRAM, ONE TIME DOSE
     Route: 048
     Dates: start: 20210608, end: 20210608
  20. BLINDED PREGABALIN [Suspect]
     Active Substance: PREGABALIN
     Dosage: 25 MILLIGRAM, ONE TIME DOSE
     Route: 048
     Dates: start: 20210608, end: 20210608
  21. PLACEBO [Suspect]
     Active Substance: UNSPECIFIED INGREDIENT
     Dosage: 75 MILLIGRAM, ONE TIME DOSE
     Route: 048
     Dates: start: 20210606, end: 20210606
  22. BLINDED PREGABALIN [Suspect]
     Active Substance: PREGABALIN
     Dosage: 100 MILLIGRAM, ONE TIME DOSE
     Route: 048
     Dates: start: 20210603, end: 20210603
  23. LUCEMYRA [Suspect]
     Active Substance: LOFEXIDINE
     Dosage: 0.18 MILLIGRAM, ONE TIME DOSE
     Route: 048
     Dates: start: 20210608, end: 20210608
  24. LUCEMYRA [Suspect]
     Active Substance: LOFEXIDINE
     Dosage: 0.36 MILLIGRAM, ONE TIME DOSE
     Route: 048
     Dates: start: 20210607, end: 20210607
  25. LUCEMYRA [Suspect]
     Active Substance: LOFEXIDINE
     Dosage: 0.54 MILLIGRAM, ONE TIME DOSE
     Route: 048
     Dates: start: 20210603, end: 20210603
  26. PLACEBO [Suspect]
     Active Substance: UNSPECIFIED INGREDIENT
     Dosage: 25 MILLIGRAM, ONE TIME DOSE
     Route: 048
     Dates: start: 20210607, end: 20210607
  27. BLINDED PREGABALIN [Suspect]
     Active Substance: PREGABALIN
     Dosage: 25 MILLIGRAM, ONE TIME DOSE
     Route: 048
     Dates: start: 20210607, end: 20210607
  28. PLACEBO [Suspect]
     Active Substance: UNSPECIFIED INGREDIENT
     Dosage: 75 MILLIGRAM, ONE TIME DOSE
     Route: 048
     Dates: start: 20210606, end: 20210606
  29. BLINDED PREGABALIN [Suspect]
     Active Substance: PREGABALIN
     Dosage: 100 MILLIGRAM, ONE TIME DOSE
     Route: 048
     Dates: start: 20210604, end: 20210604
  30. PLACEBO [Suspect]
     Active Substance: UNSPECIFIED INGREDIENT
     Dosage: 100 MILLIGRAM, ONE TIME DOSE
     Route: 048
     Dates: start: 20210603, end: 20210603
  31. LUCEMYRA [Suspect]
     Active Substance: LOFEXIDINE
     Dosage: 0.36 MILLIGRAM, ONE TIME DOSE
     Route: 048
     Dates: start: 20210604, end: 20210604
  32. LUCEMYRA [Suspect]
     Active Substance: LOFEXIDINE
     Dosage: 0.54 MILLIGRAM, ONE TIME DOSE
     Route: 048
     Dates: start: 20210604, end: 20210604
  33. BLINDED PREGABALIN [Suspect]
     Active Substance: PREGABALIN
     Dosage: 100 MILLIGRAM, ONE TIME DOSE
     Route: 048
     Dates: start: 20210607, end: 20210607
  34. BLINDED PREGABALIN [Suspect]
     Active Substance: PREGABALIN
     Dosage: 100 MILLIGRAM, ONE TIME DOSE
     Route: 048
     Dates: start: 20210605, end: 20210605
  35. PLACEBO [Suspect]
     Active Substance: UNSPECIFIED INGREDIENT
     Dosage: 200 MILLIGRAM, ONE TIME DOSE
     Route: 048
     Dates: start: 20210605, end: 20210605
  36. PLACEBO [Suspect]
     Active Substance: UNSPECIFIED INGREDIENT
     Dosage: 100 MILLIGRAM, ONE TIME DOSE
     Route: 048
     Dates: start: 20210604, end: 20210604
  37. VIVITROL [Suspect]
     Active Substance: NALTREXONE
     Indication: DRUG USE DISORDER
     Dosage: 380 MILLIGRAM, QMO
     Route: 030
     Dates: start: 20210609, end: 20210609
  38. LUCEMYRA [Suspect]
     Active Substance: LOFEXIDINE
     Dosage: 0.18 MILLIGRAM, ONE TIME DOSE
     Route: 048
     Dates: start: 20210607, end: 20210607
  39. LUCEMYRA [Suspect]
     Active Substance: LOFEXIDINE
     Dosage: 0.36 MILLIGRAM, ONE TIME DOSE
     Route: 048
     Dates: start: 20210604, end: 20210604
  40. LUCEMYRA [Suspect]
     Active Substance: LOFEXIDINE
     Dosage: 0.54 MILLIGRAM, ONE TIME DOSE
     Route: 048
     Dates: start: 20210603, end: 20210603
  41. BLINDED PREGABALIN [Suspect]
     Active Substance: PREGABALIN
     Dosage: 25 MILLIGRAM, ONE TIME DOSE
     Route: 048
     Dates: start: 20210608, end: 20210608
  42. PLACEBO [Suspect]
     Active Substance: UNSPECIFIED INGREDIENT
     Dosage: 150 MILLIGRAM, ONE TIME DOSE
     Route: 048
     Dates: start: 20210606, end: 20210606
  43. BLINDED PREGABALIN [Suspect]
     Active Substance: PREGABALIN
     Dosage: 200 MILLIGRAM, ONE TIME DOSE
     Route: 048
     Dates: start: 20210604, end: 20210604
  44. PLACEBO [Suspect]
     Active Substance: UNSPECIFIED INGREDIENT
     Dosage: 100 MILLIGRAM, ONE TIME DOSE
     Route: 048
     Dates: start: 20210603, end: 20210603
  45. PLACEBO [Suspect]
     Active Substance: UNSPECIFIED INGREDIENT
     Dosage: 25 MILLIGRAM, ONE TIME DOSE
     Route: 048
     Dates: start: 20210608, end: 20210608
  46. BLINDED PREGABALIN [Suspect]
     Active Substance: PREGABALIN
     Dosage: 25 MILLIGRAM, ONE TIME DOSE
     Route: 048
     Dates: start: 20210608, end: 20210608
  47. PLACEBO [Suspect]
     Active Substance: UNSPECIFIED INGREDIENT
     Dosage: 25 MILLIGRAM, ONE TIME DOSE
     Route: 048
     Dates: start: 20210607, end: 20210607
  48. BLINDED PREGABALIN [Suspect]
     Active Substance: PREGABALIN
     Dosage: 50 MILLIGRAM, ONE TIME DOSE
     Route: 048
     Dates: start: 20210607, end: 20210607
  49. BLINDED PREGABALIN [Suspect]
     Active Substance: PREGABALIN
     Dosage: 75 MILLIGRAM, ONE TIME DOSE
     Route: 048
     Dates: start: 20210606, end: 20210606
  50. BLINDED PREGABALIN [Suspect]
     Active Substance: PREGABALIN
     Dosage: 200 MILLIGRAM, ONE TIME DOSE
     Route: 048
     Dates: start: 20210605, end: 20210605
  51. PLACEBO [Suspect]
     Active Substance: UNSPECIFIED INGREDIENT
     Dosage: 200 MILLIGRAM, ONE TIME DOSE
     Route: 048
     Dates: start: 20210604, end: 20210604
  52. BLINDED PREGABALIN [Suspect]
     Active Substance: PREGABALIN
     Dosage: 100 MILLIGRAM, ONE TIME DOSE
     Route: 048
     Dates: start: 20210604, end: 20210604
  53. PLACEBO [Suspect]
     Active Substance: UNSPECIFIED INGREDIENT
     Dosage: 100 MILLIGRAM, ONE TIME DOSE
     Route: 048
     Dates: start: 20210604, end: 20210604
  54. BLINDED PREGABALIN [Suspect]
     Active Substance: PREGABALIN
     Dosage: 200 MILLIGRAM, ONE TIME DOSE
     Route: 048
     Dates: start: 20210604, end: 20210604
  55. BLINDED PREGABALIN [Suspect]
     Active Substance: PREGABALIN
     Dosage: 200 MILLIGRAM, ONE TIME DOSE
     Route: 048
     Dates: start: 20210603, end: 20210603
  56. PLACEBO [Suspect]
     Active Substance: UNSPECIFIED INGREDIENT
     Dosage: 100 MILLIGRAM, ONE TIME DOSE
     Route: 048
     Dates: start: 20210603, end: 20210603
  57. LUCEMYRA [Suspect]
     Active Substance: LOFEXIDINE
     Dosage: 0.18 MILLIGRAM, ONE TIME DOSE
     Route: 048
     Dates: start: 20210608, end: 20210608
  58. LUCEMYRA [Suspect]
     Active Substance: LOFEXIDINE
     Dosage: 0.18 MILLIGRAM, ONE TIME DOSE
     Route: 048
     Dates: start: 20210608, end: 20210608
  59. LUCEMYRA [Suspect]
     Active Substance: LOFEXIDINE
     Dosage: 0.54 MILLIGRAM, ONE TIME DOSE
     Route: 048
     Dates: start: 20210603, end: 20210603
  60. NALOXONE [Concomitant]
     Active Substance: NALOXONE
     Indication: DRUG PROVOCATION TEST
     Dosage: UNK, ONE TIME DOSE
     Route: 030
     Dates: start: 20210609, end: 20210609
  61. PLACEBO [Suspect]
     Active Substance: UNSPECIFIED INGREDIENT
     Dosage: 25 MILLIGRAM, ONE TIME DOSE
     Route: 048
     Dates: start: 20210608, end: 20210608
  62. PLACEBO [Suspect]
     Active Substance: UNSPECIFIED INGREDIENT
     Dosage: 25 MILLIGRAM, ONE TIME DOSE
     Route: 048
     Dates: start: 20210608, end: 20210608
  63. BLINDED PREGABALIN [Suspect]
     Active Substance: PREGABALIN
     Dosage: 25 MILLIGRAM, ONE TIME DOSE
     Route: 048
     Dates: start: 20210607, end: 20210607
  64. BLINDED PREGABALIN [Suspect]
     Active Substance: PREGABALIN
     Dosage: 150 MILLIGRAM, ONE TIME DOSE
     Route: 048
     Dates: start: 20210606, end: 20210606
  65. BLINDED PREGABALIN [Suspect]
     Active Substance: PREGABALIN
     Dosage: 200 MILLIGRAM, ONE TIME DOSE
     Route: 048
     Dates: start: 20210605, end: 20210605
  66. LUCEMYRA [Suspect]
     Active Substance: LOFEXIDINE
     Dosage: 0.18 MILLIGRAM, ONE TIME DOSE
     Route: 048
     Dates: start: 20210607, end: 20210607

REACTIONS (2)
  - Nausea [Recovering/Resolving]
  - Vomiting [Recovering/Resolving]

NARRATIVE: CASE EVENT DATE: 20210612
